FAERS Safety Report 6940481-2 (Version None)
Quarter: 2010Q3

REPORT INFORMATION
  Report Type: 
  Country: None (occurrence: None)
  Receive Date: 20100820
  Receipt Date: 20100806
  Transmission Date: 20110219
  Serious: Yes (Hospitalization)
  Sender: FDA-Public Use
  Company Number: CLOF-1000613

PATIENT
  Age: 71 Year
  Sex: Male

DRUGS (7)
  1. CYTARABINE [Suspect]
     Indication: ACUTE MYELOID LEUKAEMIA
     Dosage: BLINDED, INFORMATION WITHHELD
     Dates: start: 20090417, end: 20090421
  2. CYTARABINE [Suspect]
     Indication: ACUTE MYELOID LEUKAEMIA
     Dosage: BLINDED, INFORMATION WITHHELD
     Dates: start: 20090602, end: 20090605
  3. CLOFARABINE OR PLACEBO (CODE NOT BROKEN) [Suspect]
     Indication: ACUTE MYELOID LEUKAEMIA
     Dosage: 1 G/M2, QD,
     Dates: start: 20090417, end: 20090421
  4. CLOFARABINE OR PLACEBO (CODE NOT BROKEN) [Suspect]
     Indication: ACUTE MYELOID LEUKAEMIA
     Dosage: 1 G/M2, QD,
     Dates: start: 20090602, end: 20090605
  5. NORVASC [Concomitant]
  6. NYSTATIN [Concomitant]
  7. POTASSIUM (POTASSIUM CHLORIDE) [Suspect]

REACTIONS (11)
  - ABDOMINAL PAIN [None]
  - BONE MARROW FAILURE [None]
  - DIZZINESS [None]
  - DYSPNOEA EXERTIONAL [None]
  - EROSIVE DUODENITIS [None]
  - GASTROINTESTINAL HAEMORRHAGE [None]
  - HYPOXIA [None]
  - PALLOR [None]
  - PANCYTOPENIA [None]
  - PETECHIAE [None]
  - RECTAL HAEMORRHAGE [None]
